FAERS Safety Report 6190966-4 (Version None)
Quarter: 2009Q2

REPORT INFORMATION
  Report Type: 
  Country: None (occurrence: None)
  Receive Date: 20090513
  Receipt Date: 20090428
  Transmission Date: 20091009
  Serious: Yes (Hospitalization)
  Sender: FDA-Public Use
  Company Number: 2009001290

PATIENT
  Age: 72 Year
  Sex: Female

DRUGS (4)
  1. ERLOTINIB (ERLOTINIB) (TABLET)(ERLOTINIB) [Suspect]
     Indication: PANCREATIC CARCINOMA
     Dosage: (100 MG,QD), ORAL
     Route: 048
     Dates: start: 20081118
  2. BEVACIZUMAB (INJECTION FOR INFUSION) [Suspect]
     Indication: PANCREATIC CARCINOMA
     Dosage: (5 MG/KG,Q2W), INTRAVENOUS
     Route: 042
     Dates: start: 20081118
  3. CAPECITABINE (CAPECITABINE) [Suspect]
     Indication: PANCREATIC CARCINOMA
     Dosage: ORAL
     Route: 048
     Dates: start: 20081118
  4. GEMCITABINE [Suspect]
     Indication: PANCREATIC CARCINOMA
     Dosage: (1000 MG/M2, Q4W), INTRAVENOUS
     Route: 042
     Dates: start: 20081118

REACTIONS (1)
  - GASTROINTESTINAL OBSTRUCTION [None]
